FAERS Safety Report 18045318 (Version 1)
Quarter: 2020Q3

REPORT INFORMATION
  Report Type: Spontaneous
  Country: GB (occurrence: GB)
  Receive Date: 20200720
  Receipt Date: 20200720
  Transmission Date: 20201103
  Serious: Yes (Hospitalization)
  Sender: FDA-Public Use
  Company Number: NVSC2020GB202077

PATIENT
  Sex: Male

DRUGS (1)
  1. FARAMSIL 400 MICROGRAM PROLONGED?RELEASE TABLETS [Suspect]
     Active Substance: TAMSULOSIN
     Indication: PRODUCT USED FOR UNKNOWN INDICATION
     Dosage: 0.5 DF
     Route: 065

REACTIONS (1)
  - Wrong technique in product usage process [Unknown]
